FAERS Safety Report 10489542 (Version 2)
Quarter: 2014Q4

REPORT INFORMATION
  Report Type: Report from Study
  Country: CA (occurrence: CA)
  Receive Date: 20141002
  Receipt Date: 20141010
  Transmission Date: 20150528
  Serious: Yes (Hospitalization, Other)
  Sender: FDA-Public Use
  Company Number: CA-ABBVIE-14K-028-1288135-00

PATIENT
  Age: 15 Year
  Sex: Female

DRUGS (1)
  1. HUMIRA [Suspect]
     Active Substance: ADALIMUMAB
     Indication: CROHN^S DISEASE
     Route: 058
     Dates: start: 20140711

REACTIONS (9)
  - Dehydration [Unknown]
  - Metabolic acidosis [Recovered/Resolved]
  - Blood count abnormal [Recovered/Resolved]
  - Ovarian cyst [Unknown]
  - Appendicitis [Unknown]
  - Abdominal pain [Recovered/Resolved]
  - Asthma [Recovered/Resolved]
  - Immunosuppression [Unknown]
  - Proctitis [Unknown]

NARRATIVE: CASE EVENT DATE: 2014
